FAERS Safety Report 10621756 (Version 1)
Quarter: 2014Q4

REPORT INFORMATION
  Report Type: Spontaneous
  Country: US (occurrence: None)
  Receive Date: 20141201
  Receipt Date: 20141201
  Transmission Date: 20150529
  Serious: Yes (Disabling)
  Sender: FDA-Public Use
  Company Number: None

PATIENT
  Age: 78 Year
  Sex: Female
  Weight: 66.23 kg

DRUGS (6)
  1. CARVEDILOL. [Concomitant]
     Active Substance: CARVEDILOL
  2. LYMPHAZURIN [Suspect]
     Active Substance: ISOSULFAN BLUE
     Indication: BREAST CANCER
     Dosage: INJECTED INTO THE BREAST IN A PROCEDURE CALLE SENTINEL NODE BIOSPY.
     Dates: start: 20141015
  3. LISINOPRIL. [Concomitant]
     Active Substance: LISINOPRIL
  4. ASPIRIN. [Concomitant]
     Active Substance: ASPIRIN
  5. METFORMIN [Concomitant]
     Active Substance: METFORMIN HYDROCHLORIDE
  6. LATANOPROST. [Concomitant]
     Active Substance: LATANOPROST

REACTIONS (2)
  - Rash generalised [None]
  - Pruritus [None]

NARRATIVE: CASE EVENT DATE: 20141016
